FAERS Safety Report 5281537-2 (Version None)
Quarter: 2007Q1

REPORT INFORMATION
  Report Type: 
  Country: None (occurrence: None)
  Receive Date: 20070330
  Receipt Date: 20070322
  Transmission Date: 20070707
  Serious: Yes (Hospitalization)
  Sender: FDA-Public Use
  Company Number: US-AMGEN-US216263

PATIENT
  Sex: Male
  Weight: 89.9 kg

DRUGS (7)
  1. ARANESP [Suspect]
     Indication: RENAL FAILURE CHRONIC
     Route: 058
     Dates: start: 20060801
  2. METOPROLOL SUCCINATE [Concomitant]
     Route: 065
  3. COUMADIN [Concomitant]
     Route: 065
  4. OMEPRAZOLE [Concomitant]
     Route: 065
  5. FUROSEMIDE [Concomitant]
     Route: 065
  6. LISINOPRIL [Concomitant]
     Route: 065
  7. PREDNISONE [Concomitant]
     Route: 065

REACTIONS (7)
  - CELLULITIS [None]
  - GOUT [None]
  - HYPERSENSITIVITY [None]
  - INJECTION SITE IRRITATION [None]
  - MYOCARDIAL INFARCTION [None]
  - PRURITUS GENERALISED [None]
  - RASH PAPULAR [None]
